FAERS Safety Report 17181081 (Version 1)
Quarter: 2019Q4

REPORT INFORMATION
  Report Type: Spontaneous
  Country: IT (occurrence: IT)
  Receive Date: 20191220
  Receipt Date: 20191220
  Transmission Date: 20200122
  Serious: Yes (Other)
  Sender: FDA-Public Use
  Company Number: IT-SUN PHARMACEUTICAL INDUSTRIES LTD-2019RR-231157

PATIENT
  Age: 36 Year
  Sex: Female
  Weight: 59 kg

DRUGS (4)
  1. LETROZOLE. [Suspect]
     Active Substance: LETROZOLE
     Indication: BREAST CANCER METASTATIC
     Dosage: 2.5 MILLIGRAM, QD
     Route: 048
     Dates: start: 20190405, end: 20190524
  2. DECAPEPTYL (TRIPTORELIN EMBONATE) [Suspect]
     Active Substance: TRIPTORELIN PAMOATE
     Indication: BREAST CANCER METASTATIC
     Dosage: 3.75 MILLIGRAM, 1DOSE/4WEEKS
     Route: 030
     Dates: start: 20190405, end: 20190503
  3. KISQALI [Suspect]
     Active Substance: RIBOCICLIB
     Indication: BREAST CANCER METASTATIC
     Dosage: 600 MILLIGRAM, UNK
     Route: 065
     Dates: start: 20190405, end: 20190524
  4. KISQALI [Suspect]
     Active Substance: RIBOCICLIB
     Dosage: 400 MILLIGRAM, UNK
     Route: 048
     Dates: start: 20190614

REACTIONS (1)
  - Neutropenia [Not Recovered/Not Resolved]

NARRATIVE: CASE EVENT DATE: 20190524
